FAERS Safety Report 12308281 (Version 1)
Quarter: 2016Q2

REPORT INFORMATION
  Report Type: Report from Study
  Country: US (occurrence: US)
  Receive Date: 20160426
  Receipt Date: 20160426
  Transmission Date: 20160815
  Serious: Yes (Hospitalization, Other)
  Sender: FDA-Public Use
  Company Number: US-GILEAD-2016-0210246

PATIENT
  Age: 73 Year
  Sex: Male

DRUGS (1)
  1. RANOLAZINE [Suspect]
     Active Substance: RANOLAZINE
     Indication: PRODUCT USED FOR UNKNOWN INDICATION
     Dosage: 500 MG, UNK
     Route: 048

REACTIONS (5)
  - Chest pain [Unknown]
  - Craniocerebral injury [Unknown]
  - Drug dose omission [Unknown]
  - Myocardial infarction [Unknown]
  - Impaired work ability [Unknown]
